FAERS Safety Report 7071748 (Version 4)
Quarter: 2014Q2

REPORT INFORMATION
  Report Type: Spontaneous
  Country: US (occurrence: US)
  Receive Date: 20090804
  Receipt Date: 20140407
  Transmission Date: 20141212
  Serious: Yes (Hospitalization, Other)
  Sender: FDA-Public Use
  Company Number: US-ALEXION-A200900556

PATIENT
  Age: 42 Year
  Sex: Female

DRUGS (14)
  1. SOLIRIS [Suspect]
     Indication: PAROXYSMAL NOCTURNAL HAEMOGLOBINURIA
     Dosage: 600 MG, QW
     Route: 042
     Dates: start: 20070710, end: 20070731
  2. SOLIRIS [Suspect]
     Dosage: 900 MG, UNK
     Route: 042
     Dates: start: 20070807
  3. DAPTOMYCIN [Concomitant]
     Route: 042
  4. ZOSYN [Concomitant]
     Route: 042
  5. LOVENOX                            /00889602/ [Concomitant]
  6. COUMADIN                           /00014802/ [Concomitant]
  7. PEPCID                             /00706001/ [Concomitant]
  8. PREDNISONE [Concomitant]
  9. NORVASC                            /00972401/ [Concomitant]
  10. BENADRYL                           /00000402/ [Concomitant]
  11. HYDROMORPHONE [Concomitant]
  12. NTG [Concomitant]
  13. ALBUTEROL                          /00139501/ [Concomitant]
  14. ADVAIR [Concomitant]

REACTIONS (17)
  - Pneumonia [Unknown]
  - Unevaluable event [Unknown]
  - Anaemia [Unknown]
  - Device expulsion [Unknown]
  - Deep vein thrombosis [Unknown]
  - Haemorrhage urinary tract [Unknown]
  - Haemoptysis [Unknown]
  - Dyspnoea [Unknown]
  - Device malfunction [Unknown]
  - Pain [Unknown]
  - Central venous catheterisation [Unknown]
  - Enterococcal infection [Unknown]
  - International normalised ratio increased [Unknown]
  - Neisseria infection [Unknown]
  - Blood culture positive [Unknown]
  - Nausea [Unknown]
  - Vomiting [Unknown]
